FAERS Safety Report 8769933 (Version 2)
Quarter: 2012Q4

REPORT INFORMATION
  Report Type: 
  Country: CA (occurrence: CA)
  Receive Date: 20120906
  Receipt Date: 20121101
  Transmission Date: 20130627
  Serious: Yes (Other)
  Sender: FDA-Public Use
  Company Number: CA-ELI_LILLY_AND_COMPANY-CA201208008864

PATIENT
  Age: 55 Year
  Sex: Male
  Weight: 68.03 kg

DRUGS (5)
  1. CIALIS [Suspect]
     Indication: ERECTILE DYSFUNCTION
     Dosage: 10 mg, weekly (1/W)
     Route: 048
     Dates: start: 201204
  2. CIALIS [Suspect]
     Dosage: 1 DF, unknown
     Route: 048
  3. CRESTOR [Concomitant]
     Indication: HYPERCHOLESTEROLAEMIA
     Dosage: 20 mg, qd
     Route: 048
  4. ASPIRIN [Concomitant]
     Dosage: 81 mg, qd
     Route: 048
  5. ATACAND [Concomitant]
     Indication: HYPERTENSION
     Dosage: 8 mg, qd
     Route: 048

REACTIONS (4)
  - Urethral haemorrhage [Recovered/Resolved]
  - Dysuria [Recovered/Resolved]
  - Haemorrhage urinary tract [Recovered/Resolved]
  - Wrong technique in drug usage process [Unknown]
